FAERS Safety Report 25934358 (Version 1)
Quarter: 2025Q4

REPORT INFORMATION
  Report Type: Spontaneous
  Country: IL (occurrence: IL)
  Receive Date: 20251017
  Receipt Date: 20251017
  Transmission Date: 20260117
  Serious: Yes (Hospitalization)
  Sender: ABBVIE
  Company Number: IL-ABBVIE-6506870

PATIENT
  Age: 38 Year
  Sex: Male

DRUGS (1)
  1. UPADACITINIB [Suspect]
     Active Substance: UPADACITINIB
     Indication: Crohn^s disease
     Dosage: RINVOQ START DATE - 2025
     Route: 048
     Dates: end: 202510

REACTIONS (1)
  - Clostridial infection [Unknown]

NARRATIVE: CASE EVENT DATE: 20250101
